FAERS Safety Report 9033571 (Version 1)
Quarter: 2013Q1

REPORT INFORMATION
  Report Type: Spontaneous
  Country: US (occurrence: US)
  Receive Date: 20130128
  Receipt Date: 20130128
  Transmission Date: 20140127
  Serious: Yes (Death)
  Sender: FDA-Public Use
  Company Number: PHHY2013US007397

PATIENT
  Age: 46 Year
  Sex: Male

DRUGS (5)
  1. VALPROIC ACID [Suspect]
  2. HYDROXYZINE [Suspect]
  3. CYCLOBENZAPRINE [Suspect]
  4. ESCITALOPRAM [Suspect]
  5. IBUPROFEN [Suspect]

REACTIONS (2)
  - Completed suicide [Fatal]
  - Drug level increased [Unknown]
